FAERS Safety Report 18535630 (Version 1)
Quarter: 2020Q4

REPORT INFORMATION
  Report Type: Spontaneous
  Country: US (occurrence: US)
  Receive Date: 20201123
  Receipt Date: 20201123
  Transmission Date: 20210114
  Serious: No
  Sender: FDA-Public Use
  Company Number: US-BIOMARINAP-US-2020-133249

PATIENT
  Sex: Male

DRUGS (1)
  1. PALYNZIQ [Suspect]
     Active Substance: PEGVALIASE-PQPZ
     Indication: PHENYLKETONURIA
     Dosage: 20 MILLIGRAM
     Route: 058

REACTIONS (5)
  - Injection site rash [Recovered/Resolved]
  - Amino acid level decreased [Unknown]
  - Joint swelling [Recovered/Resolved]
  - Injection site scar [Unknown]
  - Rash [Unknown]
